FAERS Safety Report 6666512-5 (Version None)
Quarter: 2010Q2

REPORT INFORMATION
  Report Type: 
  Country: None (occurrence: None)
  Receive Date: 20100402
  Receipt Date: 20100325
  Transmission Date: 20101027
  Serious: Yes (Other)
  Sender: FDA-Public Use
  Company Number: LV-ABBOTT-10P-287-0634614-00

PATIENT
  Age: 4 Year
  Sex: Female

DRUGS (2)
  1. DEPAKINE CHRONO SUSPENSION [Suspect]
     Indication: EPILEPSY
     Route: 048
     Dates: start: 20080101
  2. TOPAMAX [Suspect]
     Indication: EPILEPSY
     Route: 048
     Dates: start: 20080101, end: 20100303

REACTIONS (1)
  - HYPERPROLACTINAEMIA [None]
